FAERS Safety Report 6852387-8 (Version None)
Quarter: 2010Q3

REPORT INFORMATION
  Report Type: 
  Country: None (occurrence: None)
  Receive Date: 20100717
  Receipt Date: 20071112
  Transmission Date: 20110219
  Serious: No
  Sender: FDA-Public Use
  Company Number: US-PFIZER INC-2007096539

PATIENT
  Sex: Female
  Weight: 79.4 kg

DRUGS (5)
  1. CHANTIX [Suspect]
     Indication: SMOKING CESSATION THERAPY
     Dates: start: 20070901
  2. NASONEX [Concomitant]
  3. CLARINEX [Concomitant]
  4. MERIDIA [Concomitant]
     Indication: WEIGHT CONTROL
  5. VYTORIN [Concomitant]
     Indication: BLOOD CHOLESTEROL ABNORMAL

REACTIONS (1)
  - EYE SWELLING [None]
